FAERS Safety Report 23974288 (Version 3)
Quarter: 2024Q4

REPORT INFORMATION
  Report Type: Spontaneous
  Country: GB (occurrence: GB)
  Receive Date: 20240614
  Receipt Date: 20241216
  Transmission Date: 20250115
  Serious: Yes (Hospitalization, Other)
  Sender: AMGEN
  Company Number: GB-Vifor (International) Inc.-VIT-2024-05006

PATIENT
  Age: 58 Year
  Sex: Male
  Weight: 104 kg

DRUGS (3)
  1. TAVNEOS [Suspect]
     Active Substance: AVACOPAN
     Indication: Anti-neutrophil cytoplasmic antibody positive vasculitis
     Dosage: 60 MILLIGRAM, QD (30,MG,BID)
     Route: 048
     Dates: start: 20231216
  2. CYCLOPHOSPHAMIDE [Concomitant]
     Active Substance: CYCLOPHOSPHAMIDE
     Indication: Anti-neutrophil cytoplasmic antibody positive vasculitis
     Dosage: 1100 MILLIGRAM,  EVERY 2-3 WEEKS, COMPLETION OF PLANNED COURSE
     Route: 042
     Dates: start: 20231222, end: 20240418
  3. AZATHIOPRINE [Concomitant]
     Active Substance: AZATHIOPRINE
     Indication: Anti-neutrophil cytoplasmic antibody positive vasculitis
     Dosage: 150 MILLIGRAM, QD
     Route: 048
     Dates: start: 20240506, end: 20240518

REACTIONS (4)
  - Pulmonary embolism [Recovered/Resolved]
  - Cellulitis [Recovered/Resolved]
  - Diarrhoea [Recovered/Resolved]
  - Skin reaction [Recovered/Resolved]

NARRATIVE: CASE EVENT DATE: 20240102
